FAERS Safety Report 18381207 (Version 1)
Quarter: 2020Q4

REPORT INFORMATION
  Report Type: Spontaneous
  Country: US (occurrence: US)
  Receive Date: 20201013
  Receipt Date: 20201013
  Transmission Date: 20210114
  Serious: Yes (Other)
  Sender: FDA-Public Use
  Company Number: None

PATIENT
  Age: 54 Year
  Sex: Male
  Weight: 85.5 kg

DRUGS (2)
  1. FINASTERIDE. [Suspect]
     Active Substance: FINASTERIDE
     Indication: PROPHYLAXIS
     Dosage: ?          QUANTITY:1 TABLET(S);?
     Route: 048
     Dates: start: 20140116, end: 20200118
  2. FINASTERIDE. [Suspect]
     Active Substance: FINASTERIDE
     Indication: ALOPECIA
     Dosage: ?          QUANTITY:1 TABLET(S);?
     Route: 048
     Dates: start: 20140116, end: 20200118

REACTIONS (8)
  - Apathy [None]
  - Anorgasmia [None]
  - Asthenia [None]
  - Change in sustained attention [None]
  - Erectile dysfunction [None]
  - Loss of libido [None]
  - Sexual dysfunction [None]
  - Anhedonia [None]

NARRATIVE: CASE EVENT DATE: 20191226
